FAERS Safety Report 4812842-9 (Version None)
Quarter: 2005Q4

REPORT INFORMATION
  Report Type: 
  Country: None (occurrence: None)
  Receive Date: 20051028
  Receipt Date: 20041124
  Transmission Date: 20060501
  Serious: No
  Sender: FDA-Public Use
  Company Number: US-GLAXOSMITHKLINE-A0535153A

PATIENT
  Age: 67 Year
  Sex: Female

DRUGS (5)
  1. ADVAIR DISKUS 100/50 [Suspect]
     Indication: DRUG USE FOR UNKNOWN INDICATION
     Route: 055
     Dates: start: 20021101
  2. SINGULAIR [Concomitant]
  3. ENBREL [Concomitant]
  4. ANSAID [Concomitant]
     Route: 065
  5. AZULENE [Concomitant]
     Route: 065

REACTIONS (1)
  - DYSPNOEA [None]
